FAERS Safety Report 12643403 (Version 1)
Quarter: 2016Q3

REPORT INFORMATION
  Report Type: Spontaneous
  Country: GB (occurrence: GB)
  Receive Date: 20160811
  Receipt Date: 20160811
  Transmission Date: 20161109
  Serious: Yes (Hospitalization)
  Sender: FDA-Public Use
  Company Number: GB-VELOXIS PHARMACEUTICALS-1056184

PATIENT
  Age: 65 Year
  Sex: Female

DRUGS (18)
  1. OMEPRAZOLE. [Concomitant]
     Active Substance: OMEPRAZOLE
  2. DOXYCYCLINE. [Concomitant]
     Active Substance: DOXYCYCLINE
  3. ASPIRIN. [Concomitant]
     Active Substance: ASPIRIN
  4. EPREX [Concomitant]
     Active Substance: ERYTHROPOIETIN
  5. NOVORAPID [Concomitant]
     Active Substance: INSULIN ASPART
  6. AMOXICILLIN. [Concomitant]
     Active Substance: AMOXICILLIN
  7. ENVARSUS XR [Suspect]
     Active Substance: TACROLIMUS
     Indication: PROPHYLAXIS AGAINST TRANSPLANT REJECTION
     Route: 048
     Dates: start: 20160310, end: 20160316
  8. BUMETANIDE. [Concomitant]
     Active Substance: BUMETANIDE
  9. GABAPENTIN. [Concomitant]
     Active Substance: GABAPENTIN
  10. LEVEMIR [Concomitant]
     Active Substance: INSULIN DETEMIR
  11. PREDNISOLONE. [Concomitant]
     Active Substance: PREDNISOLONE
  12. COTRIMOXAZOLE [Concomitant]
     Active Substance: SULFAMETHOXAZOLE\TRIMETHOPRIM
  13. MYCOPHENOLATE MOFETIL. [Concomitant]
     Active Substance: MYCOPHENOLATE MOFETIL
  14. SIMVASTATIN. [Concomitant]
     Active Substance: SIMVASTATIN
  15. CLARITHROMYCIN. [Suspect]
     Active Substance: CLARITHROMYCIN
     Route: 048
     Dates: start: 20160310, end: 20160315
  16. BUTRANS [Concomitant]
     Active Substance: BUPRENORPHINE
  17. DOXAZOSIN [Concomitant]
     Active Substance: DOXAZOSIN\DOXAZOSIN MESYLATE
  18. ENVARSUS XR [Suspect]
     Active Substance: TACROLIMUS
     Dates: start: 20160322

REACTIONS (4)
  - Renal impairment [Unknown]
  - Labelled drug-drug interaction medication error [Unknown]
  - Drug administration error [Unknown]
  - Immunosuppressant drug level increased [Recovered/Resolved]

NARRATIVE: CASE EVENT DATE: 20160317
